FAERS Safety Report 20101025 (Version 1)
Quarter: 2021Q4

REPORT INFORMATION
  Report Type: Spontaneous
  Country: US (occurrence: US)
  Receive Date: 20211123
  Receipt Date: 20211123
  Transmission Date: 20220304
  Serious: No
  Sender: FDA-Public Use
  Company Number: US-009507513-2110USA008200

PATIENT
  Age: 81 Year
  Sex: Male

DRUGS (1)
  1. TICE BCG [Suspect]
     Active Substance: BACILLUS CALMETTE-GUERIN SUBSTRAIN TICE LIVE ANTIGEN
     Indication: Bladder cancer

REACTIONS (5)
  - Product prescribing issue [Unknown]
  - Incorrect dose administered [Unknown]
  - Labelled drug-drug interaction issue [Unknown]
  - Product supply issue [Unknown]
  - No adverse event [Unknown]
